FAERS Safety Report 9396805 (Version 1)
Quarter: 2013Q3

REPORT INFORMATION
  Report Type: Other
  Country: US (occurrence: US)
  Receive Date: 20130712
  Receipt Date: 20130712
  Transmission Date: 20140515
  Serious: Yes (Other)
  Sender: FDA-Public Use
  Company Number: US-BRISTOL-MYERS SQUIBB COMPANY-19096973

PATIENT
  Age: 62 Year
  Sex: Male

DRUGS (2)
  1. IFOSFAMIDE [Suspect]
     Indication: SARCOMA
  2. DOXORUBICIN [Suspect]
     Indication: SARCOMA

REACTIONS (1)
  - Leukaemia [Unknown]
